FAERS Safety Report 14371460 (Version 4)
Quarter: 2018Q1

REPORT INFORMATION
  Report Type: Spontaneous
  Country: BR (occurrence: BR)
  Receive Date: 20180110
  Receipt Date: 20180309
  Transmission Date: 20180509
  Serious: Yes (Death, Hospitalization)
  Sender: FDA-Public Use
  Company Number: BR-AUROBINDO-AUR-APL-2018-001449

PATIENT
  Age: 73 Year
  Sex: Female
  Weight: 93 kg

DRUGS (22)
  1. CLOPIDOGREL [Suspect]
     Active Substance: CLOPIDOGREL BISULFATE
     Indication: ANTIPLATELET THERAPY
     Dosage: 75 MG, UNK
     Route: 048
     Dates: start: 20171211, end: 20171227
  2. SIMVASTATIN. [Concomitant]
     Active Substance: SIMVASTATIN
     Indication: DYSLIPIDAEMIA
     Dosage: 20 MG, UNK
     Route: 048
     Dates: end: 20171211
  3. SIMVASTATIN. [Concomitant]
     Active Substance: SIMVASTATIN
     Dosage: 40 UNK, UNK
     Route: 048
     Dates: start: 20171222, end: 20171227
  4. RANITIDINE. [Concomitant]
     Active Substance: RANITIDINE
     Indication: ANTIPLATELET THERAPY
     Dosage: 50 MG, TWO TIMES A DAY
     Route: 042
     Dates: end: 20171211
  5. ISOSORBID MONONITRATE [Concomitant]
     Active Substance: ISOSORBIDE MONONITRATE
     Indication: VASODILATION PROCEDURE
     Dosage: 20 MG, UNK
     Route: 048
     Dates: start: 20171208, end: 20171211
  6. DIPYRONE [Concomitant]
     Active Substance: DIPYRONE
     Dosage: 40 GTT, AS NECESSARY
     Route: 048
     Dates: start: 20171213, end: 20171227
  7. CARVEDILOL. [Concomitant]
     Active Substance: CARVEDILOL
     Indication: PRODUCT USED FOR UNKNOWN INDICATION
     Dosage: 3125 MG, TWO TIMES A DAY
     Route: 048
     Dates: start: 20171208, end: 20171211
  8. DIPYRONE [Concomitant]
     Active Substance: DIPYRONE
     Indication: ANALGESIC THERAPY
     Dosage: 1 G, AS NECESSARY
     Route: 042
     Dates: start: 20171211, end: 20171213
  9. FUROSEMIDE. [Concomitant]
     Active Substance: FUROSEMIDE
     Indication: DIURETIC THERAPY
     Dosage: 20 MG, AT 2:00PM
     Route: 042
     Dates: start: 20171216, end: 20171227
  10. ACETYLSALICYLIC ACID [Concomitant]
     Active Substance: ASPIRIN
     Indication: ANTIPLATELET THERAPY
     Dosage: 100 MG, UNK
     Route: 048
     Dates: end: 20171211
  11. CARVEDILOL. [Concomitant]
     Active Substance: CARVEDILOL
     Dosage: 625 MG, TWO TIMES A DAY
     Route: 048
     Dates: start: 20171215, end: 20171227
  12. CEFEPIMA                           /01263801/ [Concomitant]
     Active Substance: CEFEPIME HYDROCHLORIDE
     Indication: PNEUMONIA
     Dosage: 2 G, 3 TIMES A DAY
     Route: 042
     Dates: start: 20171215, end: 20171216
  13. HYDROCORTISONE. [Concomitant]
     Active Substance: HYDROCORTISONE
     Indication: ADRENOCORTICAL STEROID THERAPY
     Dosage: 100 MG, TWO TIMES A DAY
     Route: 042
     Dates: start: 20171216, end: 20171227
  14. ENOXAPARIN [Concomitant]
     Active Substance: ENOXAPARIN
     Indication: ANTICOAGULANT THERAPY
     Dosage: 40 MG, UNK
     Route: 058
     Dates: end: 20171211
  15. CARVEDILOL. [Concomitant]
     Active Substance: CARVEDILOL
     Dosage: 3125 MG, TWO TIMES A DAY
     Route: 048
     Dates: start: 20171212, end: 20171215
  16. HEPARIN [Concomitant]
     Active Substance: HEPARIN SODIUM
     Indication: ANTICOAGULANT THERAPY
     Dosage: 5000 UI, TWO TIMES A DAY
     Route: 058
     Dates: start: 20171211, end: 20171226
  17. CEFEPIMA                           /01263801/ [Concomitant]
     Active Substance: CEFEPIME HYDROCHLORIDE
     Dosage: 1 G, 8/8 H
     Route: 042
     Dates: start: 20171216, end: 20171227
  18. RANITIDINE. [Concomitant]
     Active Substance: RANITIDINE
     Indication: ULCER
     Dosage: 50 UNK, UNK
     Route: 042
     Dates: start: 20171211, end: 20171213
  19. ACETYLSALICYLIC ACID [Concomitant]
     Active Substance: ASPIRIN
     Dosage: 100 MG, UNK
     Route: 048
     Dates: start: 20171212, end: 20171227
  20. ISOSORBID MONONITRATE [Concomitant]
     Active Substance: ISOSORBIDE MONONITRATE
     Dosage: 20 MG, 8 AND 16 H
     Route: 048
     Dates: start: 20171212, end: 20171227
  21. CLONAZEPAM. [Concomitant]
     Active Substance: CLONAZEPAM
     Indication: ANXIOLYTIC THERAPY
     Dosage: 10 GTT, AT BED TIME
     Route: 048
     Dates: start: 20171212, end: 20171227
  22. OMEPRAZOLE. [Concomitant]
     Active Substance: OMEPRAZOLE
     Indication: ULCER
     Dosage: 20 MG, TWO TIMES A DAY
     Route: 048
     Dates: start: 20171213, end: 20171227

REACTIONS (1)
  - Vascular stent thrombosis [Fatal]

NARRATIVE: CASE EVENT DATE: 20171211
